FAERS Safety Report 5408001-1 (Version None)
Quarter: 2007Q3

REPORT INFORMATION
  Report Type: 
  Country: None (occurrence: None)
  Receive Date: 20070716
  Receipt Date: 20070703
  Transmission Date: 20080115
  Serious: Yes (Other)
  Sender: FDA-Public Use
  Company Number: GB-MHRA-ADR20130408

PATIENT
  Sex: Male

DRUGS (3)
  1. FLEBOGAMMA 5% (INTRAVENOUS IMMUNOGLOBULIN) [Suspect]
     Indication: NEUROPATHY
     Dosage: IV
     Route: 042
     Dates: start: 20030101
  2. VIGAM [Concomitant]
  3. SANDOGLOBULIN [Concomitant]

REACTIONS (2)
  - HEPATITIS B [None]
  - LIVER FUNCTION TEST ABNORMAL [None]
